FAERS Safety Report 7949154-0 (Version None)
Quarter: 2011Q4

REPORT INFORMATION
  Report Type: 
  Country: None (occurrence: None)
  Receive Date: 20111130
  Receipt Date: 20111123
  Transmission Date: 20120403
  Serious: Yes (Other)
  Sender: FDA-Public Use
  Company Number: DE-B.I. PHARMACEUTICALS,INC./RIDGEFIELD-2011-DE-06510DE

PATIENT
  Age: 85 Year
  Sex: Female
  Weight: 90 kg

DRUGS (5)
  1. TILIDIN [Concomitant]
  2. PRADAXA [Suspect]
     Dosage: 220 MG
     Dates: start: 20111103, end: 20111116
  3. TORSEMIDE [Concomitant]
  4. SPIRONOLACTONE [Concomitant]
  5. BETABLOCKER [Concomitant]

REACTIONS (3)
  - GLOMERULAR FILTRATION RATE DECREASED [None]
  - RENAL FAILURE ACUTE [None]
  - BLOOD CREATININE INCREASED [None]
